FAERS Safety Report 4802912-3 (Version None)
Quarter: 2005Q4

REPORT INFORMATION
  Report Type: 
  Country: None (occurrence: None)
  Receive Date: 20051013
  Receipt Date: 20051007
  Transmission Date: 20060501
  Serious: Yes (Death, Life-Threatening)
  Sender: FDA-Public Use
  Company Number: 2005-02085

PATIENT
  Age: 60 Year
  Sex: Male
  Weight: 89.8 kg

DRUGS (1)
  1. VELCADE [Suspect]
     Indication: NON-SMALL CELL LUNG CANCER
     Dosage: 3.15 MG, INTRAVENOUS
     Route: 042
     Dates: start: 20050927, end: 20051004

REACTIONS (4)
  - DYSPNOEA [None]
  - FALL [None]
  - LOSS OF CONSCIOUSNESS [None]
  - SUDDEN DEATH [None]
